FAERS Safety Report 13416994 (Version 3)
Quarter: 2017Q2

REPORT INFORMATION
  Report Type: Report from Study
  Country: US (occurrence: US)
  Receive Date: 20170407
  Receipt Date: 20170519
  Transmission Date: 20170830
  Serious: Yes (Hospitalization)
  Sender: FDA-Public Use
  Company Number: PHEH2017US010277

PATIENT
  Age: 60 Year
  Sex: Female

DRUGS (1)
  1. MYFORTIC [Suspect]
     Active Substance: MYCOPHENOLATE SODIUM
     Indication: RENAL TRANSPLANT
     Dosage: 180 MG, BID
     Route: 048
     Dates: start: 20150801

REACTIONS (4)
  - Diabetic gangrene [Recovering/Resolving]
  - Gout [Recovered/Resolved]
  - Constipation [Unknown]
  - Infection [Unknown]

NARRATIVE: CASE EVENT DATE: 20160301
